FAERS Safety Report 20412331 (Version 1)
Quarter: 2022Q1

REPORT INFORMATION
  Report Type: Spontaneous
  Country: US (occurrence: US)
  Receive Date: 20220201
  Receipt Date: 20220201
  Transmission Date: 20220423
  Serious: Yes (Other)
  Sender: FDA-Public Use
  Company Number: US-ADVANZ PHARMA-202201000451

PATIENT

DRUGS (6)
  1. DIGOXIN [Suspect]
     Active Substance: DIGOXIN
     Indication: Cardiomyopathy
     Dosage: UNK
  2. MILRINONE [Suspect]
     Active Substance: MILRINONE
     Indication: Cardiomyopathy
     Dosage: UNK, MILRINONE DRIP
     Route: 041
  3. BUMETANIDE [Suspect]
     Active Substance: BUMETANIDE
     Indication: Cardiomyopathy
     Dosage: UNK
  4. METOLAZONE [Suspect]
     Active Substance: METOLAZONE
     Indication: Cardiomyopathy
     Dosage: UNK
  5. SPIRONOLACTONE [Suspect]
     Active Substance: SPIRONOLACTONE
     Indication: Cardiomyopathy
     Dosage: UNK
  6. IVABRADINE [Suspect]
     Active Substance: IVABRADINE
     Indication: Cardiomyopathy
     Dosage: UNK

REACTIONS (1)
  - Hypokalaemia [Unknown]
